FAERS Safety Report 22537170 (Version 5)
Quarter: 2023Q4

REPORT INFORMATION
  Report Type: Report from Study
  Country: BE (occurrence: BE)
  Receive Date: 20230608
  Receipt Date: 20231027
  Transmission Date: 20240109
  Serious: Yes (Hospitalization)
  Sender: FDA-Public Use
  Company Number: BE-PFIZER INC-PV202300098913

PATIENT
  Age: 32 Year
  Sex: Female

DRUGS (8)
  1. ETRASIMOD [Suspect]
     Active Substance: ETRASIMOD
     Indication: Crohn^s disease
     Dosage: ONCE DAILY
     Route: 048
     Dates: start: 20230403
  2. CLINDAMYCIN [Concomitant]
     Active Substance: CLINDAMYCIN
     Indication: Vaginal abscess
     Dosage: UNK
     Dates: start: 20230420, end: 20230427
  3. PAROXETINE [Concomitant]
     Active Substance: PAROXETINE
     Indication: Depressed mood
     Dosage: 20 MG, 1X/DAY
     Route: 048
     Dates: start: 2020
  4. BISOPROLOL [Concomitant]
     Active Substance: BISOPROLOL\BISOPROLOL FUMARATE
     Indication: Hypertension
     Dosage: 5 MG, 1X/DAY
     Route: 048
     Dates: start: 201904
  5. RUPATALL [Concomitant]
     Indication: Hypersensitivity
     Dosage: 10 MG, 1X/DAY
     Route: 048
     Dates: start: 2018
  6. ETHINYL ESTRADIOL\GESTODENE [Concomitant]
     Active Substance: ETHINYL ESTRADIOL\GESTODENE
     Indication: Contraception
     Dosage: UNK, 1X/DAY (LINDYNETTE 30)
     Route: 048
     Dates: start: 2010
  7. PANTOPRAZOLE SODIUM [Concomitant]
     Active Substance: PANTOPRAZOLE SODIUM
     Indication: Gastrointestinal disorder
     Dosage: 40 MG, 1X/DAY
     Route: 048
     Dates: start: 2021
  8. DAFALGAN [Concomitant]
     Active Substance: ACETAMINOPHEN
     Indication: Pain
     Dosage: 1 G, 1X/DAY
     Route: 048
     Dates: start: 20230404

REACTIONS (1)
  - Clostridium difficile colitis [Recovered/Resolved]

NARRATIVE: CASE EVENT DATE: 20230525
